FAERS Safety Report 19211787 (Version 1)
Quarter: 2021Q2

REPORT INFORMATION
  Report Type: Spontaneous
  Country: US (occurrence: US)
  Receive Date: 20210504
  Receipt Date: 20210504
  Transmission Date: 20210717
  Serious: Yes (Death, Other)
  Sender: FDA-Public Use
  Company Number: None

PATIENT
  Age: 37 Year
  Sex: Female
  Weight: 56.25 kg

DRUGS (9)
  1. PRAZOSIN. [Concomitant]
     Active Substance: PRAZOSIN
  2. RISPERIDONE. [Suspect]
     Active Substance: RISPERIDONE
  3. LITHIUM. [Suspect]
     Active Substance: LITHIUM
  4. LATUDA [Suspect]
     Active Substance: LURASIDONE HYDROCHLORIDE
  5. ABILIFY [Suspect]
     Active Substance: ARIPIPRAZOLE
  6. LAMICTAL [Suspect]
     Active Substance: LAMOTRIGINE
  7. ZYPREXA [Suspect]
     Active Substance: OLANZAPINE
     Indication: DRUG THERAPY
     Dosage: ?          QUANTITY:1 ORALLY DISINTIGRAT;OTHER ROUTE:LITRE OF ZYPREXA INJECTION?
     Route: 048
     Dates: start: 20181011, end: 20210115
  8. SAPHRIS [Suspect]
     Active Substance: ASENAPINE MALEATE
  9. ATIVAN [Concomitant]
     Active Substance: LORAZEPAM

REACTIONS (4)
  - Hallucination [None]
  - Dyspnoea [None]
  - Anaphylactic reaction [None]
  - Documented hypersensitivity to administered product [None]

NARRATIVE: CASE EVENT DATE: 20201201
